FAERS Safety Report 20011314 (Version 2)
Quarter: 2021Q4

REPORT INFORMATION
  Report Type: Spontaneous
  Country: JP (occurrence: JP)
  Receive Date: 20211029
  Receipt Date: 20211221
  Transmission Date: 20220303
  Serious: Yes (Life-Threatening, Hospitalization, Other)
  Sender: FDA-Public Use
  Company Number: JP-GLAXOSMITHKLINE-JP2021JPN221929

PATIENT
  Age: 78 Year
  Sex: Female
  Weight: 42.9 kg

DRUGS (7)
  1. VALTREX [Suspect]
     Active Substance: VALACYCLOVIR HYDROCHLORIDE
     Indication: Herpes zoster
     Dosage: 3000 MG/DAY
     Route: 048
     Dates: start: 20201219, end: 20201221
  2. LOXOPROFEN [Suspect]
     Active Substance: LOXOPROFEN
     Indication: Herpes zoster
     Dosage: UNK, PRN
     Route: 048
  3. AMLODIPINE BESYLATE [Concomitant]
     Active Substance: AMLODIPINE BESYLATE
     Dosage: 2.5 MG/DAY
     Route: 048
  4. GLIMICRON TABLETS [Concomitant]
     Dosage: 20 MG/DAY
     Route: 048
  5. TRAZENTA TABLETS [Concomitant]
     Dosage: 5 MG/DAY
     Route: 048
  6. PITAVASTATIN CALCIUM [Concomitant]
     Active Substance: PITAVASTATIN CALCIUM
     Dosage: 2 MG/DAY
     Route: 048
  7. BUFORMIN [Concomitant]
     Active Substance: BUFORMIN
     Dosage: 100 MG/DAY
     Route: 048

REACTIONS (12)
  - Toxic encephalopathy [Recovered/Resolved]
  - Altered state of consciousness [Recovered/Resolved]
  - Renal disorder [Recovering/Resolving]
  - Melaena [Unknown]
  - Small intestinal haemorrhage [Unknown]
  - Nephropathy [Unknown]
  - Hallucination [Unknown]
  - Disorganised speech [Unknown]
  - Metabolic acidosis [Unknown]
  - Glossoptosis [Unknown]
  - Prescribed overdose [Unknown]
  - Inappropriate schedule of product administration [Unknown]

NARRATIVE: CASE EVENT DATE: 20201220
